FAERS Safety Report 11723284 (Version 1)
Quarter: 2015Q4

REPORT INFORMATION
  Report Type: Spontaneous
  Country: GB (occurrence: GB)
  Receive Date: 20151111
  Receipt Date: 20151111
  Transmission Date: 20160304
  Serious: Yes (Other)
  Sender: FDA-Public Use
  Company Number: GB-PFIZER INC-2015327104

PATIENT
  Age: 9 Year
  Sex: Male

DRUGS (2)
  1. ZARONTIN [Suspect]
     Active Substance: ETHOSUXIMIDE
     Dosage: 5 ML, 2X/DAY
     Route: 048
  2. ZARONTIN [Suspect]
     Active Substance: ETHOSUXIMIDE
     Indication: PETIT MAL EPILEPSY
     Dosage: 5 ML, 1X/DAY
     Route: 048
     Dates: start: 20150923

REACTIONS (3)
  - Sluggishness [Unknown]
  - Tremor [Unknown]
  - Depressed mood [Unknown]

NARRATIVE: CASE EVENT DATE: 20150924
